FAERS Safety Report 7295969-4 (Version None)
Quarter: 2011Q1

REPORT INFORMATION
  Report Type: 
  Country: None (occurrence: None)
  Receive Date: 20110216
  Receipt Date: 20110209
  Transmission Date: 20110831
  Serious: No
  Sender: FDA-Public Use
  Company Number: US-ABBOTT-11P-163-0703860-00

PATIENT
  Sex: Female
  Weight: 88.53 kg

DRUGS (4)
  1. SIMCOR [Suspect]
     Indication: BLOOD TRIGLYCERIDES INCREASED
  2. MEDICATION FOR GOUT [Concomitant]
     Indication: GOUT
  3. FENOFIBRATE [Concomitant]
     Indication: PRODUCT USED FOR UNKNOWN INDICATION
  4. ASPIRIN [Concomitant]
     Indication: PRODUCT USED FOR UNKNOWN INDICATION
     Dosage: 30 MINUTES BEFORE SIMCOR

REACTIONS (4)
  - FLUSHING [None]
  - ASTHENIA [None]
  - DYSPNOEA [None]
  - DIZZINESS [None]
